FAERS Safety Report 9230194 (Version 1)
Quarter: 2013Q2

REPORT INFORMATION
  Report Type: Report from Study
  Country: CA (occurrence: CA)
  Receive Date: 20130415
  Receipt Date: 20130415
  Transmission Date: 20140414
  Serious: Yes (Other)
  Sender: FDA-Public Use
  Company Number: CA-JNJFOC-20130404037

PATIENT
  Age: 45 Year
  Sex: Female
  Weight: 79 kg

DRUGS (4)
  1. REMICADE [Suspect]
     Indication: CROHN^S DISEASE
     Route: 042
     Dates: start: 201005
  2. IMURAN [Concomitant]
     Route: 048
  3. NEXIUM [Concomitant]
     Route: 065
  4. NORTRIPTYLINE [Concomitant]
     Indication: SLEEP DISORDER
     Route: 065

REACTIONS (1)
  - Injury [Not Recovered/Not Resolved]
